FAERS Safety Report 7788820-7 (Version None)
Quarter: 2011Q3

REPORT INFORMATION
  Report Type: 
  Country: None (occurrence: None)
  Receive Date: 20110928
  Receipt Date: 20110917
  Transmission Date: 20111222
  Serious: Yes (Other)
  Sender: FDA-Public Use
  Company Number: IPC201109-003178

PATIENT
  Age: 54 Year
  Sex: Male

DRUGS (4)
  1. METOPROLOL TARTRATE [Suspect]
     Indication: HYPERTENSION
     Dosage: 50 MG SR
  2. INDAPAMIDE [Suspect]
     Indication: HYPERTENSION
     Dosage: 2.5 MG
  3. LOSARTAN POTASSIUM [Suspect]
     Indication: HYPERTENSION
     Dosage: 25 MG
  4. AMLODIPINE [Suspect]
     Indication: HYPERTENSION
     Dosage: 2.5 MG

REACTIONS (4)
  - GLUCOSE TOLERANCE IMPAIRED [None]
  - BLOOD PRESSURE DECREASED [None]
  - ANGINA PECTORIS [None]
  - HYPERTENSION [None]
